FAERS Safety Report 21645966 (Version 1)
Quarter: 2022Q4

REPORT INFORMATION
  Report Type: Spontaneous
  Country: US (occurrence: US)
  Receive Date: 20221126
  Receipt Date: 20221126
  Transmission Date: 20230113
  Serious: No
  Sender: FDA-Public Use
  Company Number: US-AMGEN-USASP2022204702

PATIENT
  Age: 63 Year
  Sex: Female

DRUGS (2)
  1. EVENITY [Suspect]
     Active Substance: ROMOSOZUMAB-AQQG
     Indication: Osteoporosis prophylaxis
     Dosage: 210 MILLIGRAM, QMO
     Route: 058
     Dates: start: 202210
  2. EVENITY [Suspect]
     Active Substance: ROMOSOZUMAB-AQQG
     Indication: Off label use

REACTIONS (2)
  - Rash pruritic [Unknown]
  - Off label use [Unknown]

NARRATIVE: CASE EVENT DATE: 20220101
